FAERS Safety Report 14629359 (Version 1)
Quarter: 2018Q1

REPORT INFORMATION
  Report Type: Spontaneous
  Country: US (occurrence: US)
  Receive Date: 20180312
  Receipt Date: 20180312
  Transmission Date: 20180509
  Serious: Yes (Other)
  Sender: FDA-Public Use
  Company Number: None

PATIENT
  Age: 57 Year
  Sex: Female
  Weight: 108 kg

DRUGS (5)
  1. SYNTHROID [Concomitant]
     Active Substance: LEVOTHYROXINE SODIUM
  2. AZITHROMYCIN 250 MG TABLET [Suspect]
     Active Substance: AZITHROMYCIN ANHYDROUS
     Indication: PYREXIA
     Dosage: ?          QUANTITY:6 TABLET(S);?
     Route: 048
     Dates: start: 20180216, end: 20180220
  3. AZITHROMYCIN 250 MG TABLET [Suspect]
     Active Substance: AZITHROMYCIN ANHYDROUS
     Indication: PULMONARY CONGESTION
     Dosage: ?          QUANTITY:6 TABLET(S);?
     Route: 048
     Dates: start: 20180216, end: 20180220
  4. AZITHROMYCIN 250 MG TABLET [Suspect]
     Active Substance: AZITHROMYCIN ANHYDROUS
     Indication: SINUSITIS
     Dosage: ?          QUANTITY:6 TABLET(S);?
     Route: 048
     Dates: start: 20180216, end: 20180220
  5. BABY ASPIRIN [Concomitant]
     Active Substance: ASPIRIN

REACTIONS (2)
  - Ear congestion [None]
  - Tinnitus [None]

NARRATIVE: CASE EVENT DATE: 20180217
